FAERS Safety Report 6902233-9 (Version None)
Quarter: 2010Q3

REPORT INFORMATION
  Report Type: 
  Country: None (occurrence: None)
  Receive Date: 20100803
  Receipt Date: 20080429
  Transmission Date: 20110219
  Serious: No
  Sender: FDA-Public Use
  Company Number: US-PFIZER INC-2008038484

PATIENT
  Sex: Female
  Weight: 42.2 kg

DRUGS (5)
  1. LYRICA [Suspect]
     Indication: FIBROMYALGIA
     Dosage: 350MG,DAILY
     Dates: start: 20070917
  2. DOXEPIN HCL [Concomitant]
  3. ADVAIR DISKUS 100/50 [Concomitant]
  4. FLONASE [Concomitant]
  5. SPIRIVA [Concomitant]

REACTIONS (1)
  - WEIGHT INCREASED [None]
